FAERS Safety Report 5271255-9 (Version None)
Quarter: 2007Q1

REPORT INFORMATION
  Report Type: 
  Country: None (occurrence: None)
  Receive Date: 20070321
  Receipt Date: 20070314
  Transmission Date: 20070707
  Serious: Yes (Death, Other)
  Sender: FDA-Public Use
  Company Number: US-PURDUE-USA_2007_0026740

PATIENT
  Age: 46 Year
  Sex: Male

DRUGS (5)
  1. OXYCODONE HCL [Suspect]
     Indication: DRUG ABUSER
  2. METHAMPHETAMINE HYDROCHLORIDE [Suspect]
     Indication: DRUG ABUSER
  3. XANAX [Suspect]
     Indication: DRUG ABUSER
  4. BENADRYL [Suspect]
     Indication: DRUG ABUSER
  5. METHADONE HCL [Suspect]
     Indication: DRUG ABUSER

REACTIONS (3)
  - GUN SHOT WOUND [None]
  - LETHARGY [None]
  - SUBSTANCE ABUSE [None]
